FAERS Safety Report 20139155 (Version 1)
Quarter: 2021Q4

REPORT INFORMATION
  Report Type: Spontaneous
  Country: US (occurrence: None)
  Receive Date: 20211201
  Receipt Date: 20211201
  Transmission Date: 20220303
  Serious: Yes (Death)
  Sender: FDA-Public Use
  Company Number: None

PATIENT
  Age: 74 Year
  Sex: Male
  Weight: 120 kg

DRUGS (3)
  1. TOCILIZUMAB [Suspect]
     Active Substance: TOCILIZUMAB
     Indication: COVID-19
     Dosage: OTHER FREQUENCY : ONCE;?
     Route: 042
     Dates: start: 20211123, end: 20211123
  2. REMDESIVIR [Concomitant]
     Active Substance: REMDESIVIR
     Dates: start: 20211123, end: 20211123
  3. DEXAMETHASONE [Concomitant]
     Active Substance: DEXAMETHASONE
     Dates: start: 20211123, end: 20211123

REACTIONS (6)
  - Pulseless electrical activity [None]
  - Cardiogenic shock [None]
  - COVID-19 pneumonia [None]
  - Acute respiratory failure [None]
  - Toxic encephalopathy [None]
  - Bundle branch block left [None]

NARRATIVE: CASE EVENT DATE: 20211123
